FAERS Safety Report 5572916-4 (Version None)
Quarter: 2007Q4

REPORT INFORMATION
  Report Type: 
  Country: None (occurrence: None)
  Receive Date: 20071219
  Receipt Date: 20071219
  Transmission Date: 20080405
  Serious: Yes (Hospitalization)
  Sender: FDA-Public Use
  Company Number: None

PATIENT
  Age: 28 Year
  Sex: Male
  Weight: 77.1115 kg

DRUGS (5)
  1. CLOZAPINE [Suspect]
     Dosage: 1100 DAY  PO
     Route: 048
  2. OLANZAPINE [Suspect]
     Dosage: 10MG BID PO
     Route: 048
  3. CLONAZEPAM [Concomitant]
  4. LIDOCAINE VISC. [Concomitant]
  5. LORAZEPAM [Concomitant]

REACTIONS (10)
  - ABNORMAL BEHAVIOUR [None]
  - AGGRESSION [None]
  - BLOOD CREATINE PHOSPHOKINASE INCREASED [None]
  - DROOLING [None]
  - DYSARTHRIA [None]
  - FALL [None]
  - HYPERHIDROSIS [None]
  - ORAL INTAKE REDUCED [None]
  - TACHYCARDIA [None]
  - TREMOR [None]
